FAERS Safety Report 18770598 (Version 6)
Quarter: 2021Q1

REPORT INFORMATION
  Report Type: Spontaneous
  Country: BR (occurrence: BR)
  Receive Date: 20210121
  Receipt Date: 20210210
  Transmission Date: 20210419
  Serious: Yes (Death, Life-Threatening, Hospitalization)
  Sender: FDA-Public Use
  Company Number: NVSC2021BR013021

PATIENT
  Age: 2 Year
  Sex: Male
  Weight: 10.1 kg

DRUGS (9)
  1. PREDNISOLONE. [Concomitant]
     Active Substance: PREDNISOLONE
     Dosage: 0.25 MG/KG, QD (WITHDRAWAL PHASE)
     Route: 065
     Dates: start: 20201223
  2. VIT D [Concomitant]
     Active Substance: VITAMIN D NOS
     Indication: PRODUCT USED FOR UNKNOWN INDICATION
     Dosage: UNK
     Route: 065
  3. ZOLGENSMA [Suspect]
     Active Substance: ONASEMNOGENE ABEPARVOVEC-XIOI
     Indication: SPINAL MUSCULAR ATROPHY
     Dosage: UNK, ONCE/SINGLE (01 APPLICATION)
     Route: 042
     Dates: start: 20201120
  4. L?CARNITINE [Concomitant]
     Active Substance: LEVOCARNITINE
     Indication: PRODUCT USED FOR UNKNOWN INDICATION
     Dosage: UNK
     Route: 065
  5. SALBUTAMOL [Concomitant]
     Active Substance: ALBUTEROL
     Indication: PRODUCT USED FOR UNKNOWN INDICATION
     Dosage: UNK
     Route: 065
  6. VITAMIIN C [Concomitant]
     Active Substance: ASCORBIC ACID
     Indication: PRODUCT USED FOR UNKNOWN INDICATION
     Dosage: UNK
     Route: 065
  7. AEROLIN [Concomitant]
     Active Substance: ALBUTEROL
     Indication: PRODUCT USED FOR UNKNOWN INDICATION
     Dosage: UNK
     Route: 065
  8. CLENIL [Concomitant]
     Active Substance: BECLOMETHASONE DIPROPIONATE
     Indication: PRODUCT USED FOR UNKNOWN INDICATION
     Dosage: UNK
     Route: 065
  9. PREDNISOLONE. [Concomitant]
     Active Substance: PREDNISOLONE
     Indication: PRODUCT USED FOR UNKNOWN INDICATION
     Dosage: 1 MG/KG, QD
     Route: 065
     Dates: start: 20201119

REACTIONS (19)
  - Alanine aminotransferase increased [Unknown]
  - Escherichia sepsis [Fatal]
  - Cardio-respiratory arrest [Fatal]
  - Hypotension [Fatal]
  - Abdominal sepsis [Fatal]
  - Bilirubin conjugated decreased [Unknown]
  - Heart rate increased [Fatal]
  - Haemoglobin decreased [Unknown]
  - Blood pressure decreased [Fatal]
  - Gastrointestinal bacterial infection [Fatal]
  - Neutrophil count decreased [Unknown]
  - Aspartate aminotransferase increased [Unknown]
  - Leukocytosis [Fatal]
  - Soft tissue necrosis [Fatal]
  - Pyrexia [Fatal]
  - Lymphocyte count decreased [Unknown]
  - Hyperhidrosis [Fatal]
  - Peripheral coldness [Fatal]
  - Blood bilirubin decreased [Unknown]

NARRATIVE: CASE EVENT DATE: 20201123
